FAERS Safety Report 6749105-0 (Version None)
Quarter: 2010Q2

REPORT INFORMATION
  Report Type: 
  Country: None (occurrence: None)
  Receive Date: 20100601
  Receipt Date: 20100525
  Transmission Date: 20101027
  Serious: Yes (Other)
  Sender: FDA-Public Use
  Company Number: JP-ASTRAZENECA-2010SE24312

PATIENT
  Age: 62 Year
  Sex: Male
  Weight: 92 kg

DRUGS (4)
  1. KENZEN [Suspect]
     Indication: HYPERTENSION
     Route: 048
     Dates: start: 19850101, end: 20100508
  2. KENZEN [Suspect]
     Dosage: THE PATIENT TOOK 16 MG AND TWO HOURS LATER HE TOOK AGAIN THE SAME DOSES IN ERROR.
     Route: 048
     Dates: start: 20100508, end: 20100508
  3. VERAPAMIL [Suspect]
     Indication: DRUG USE FOR UNKNOWN INDICATION
     Route: 048
     Dates: start: 19850101, end: 20100508
  4. VERAPAMIL [Suspect]
     Dosage: THE PATIENT TOOK 240 MG AND TWO HOURS LATER HE TOOK AGAIN THE SAME DOSES IN ERROR.
     Route: 048
     Dates: start: 20100508, end: 20100508

REACTIONS (2)
  - ACCIDENTAL OVERDOSE [None]
  - HYPOTENSION [None]
